FAERS Safety Report 11271739 (Version 3)
Quarter: 2019Q4

REPORT INFORMATION
  Report Type: Spontaneous
  Country: US (occurrence: US)
  Receive Date: 20150715
  Receipt Date: 20191216
  Transmission Date: 20200122
  Serious: Yes (Hospitalization, Other)
  Sender: FDA-Public Use
  Company Number: US-UCBSA-2015022500

PATIENT
  Sex: Male
  Weight: 94 kg

DRUGS (8)
  1. VIMPAT [Suspect]
     Active Substance: LACOSAMIDE
     Indication: FOCAL DYSCOGNITIVE SEIZURES
     Dosage: STRENGTH:100 MG, ONE TAB AT MORNING, TWO TAB AT NIGHT, 2X/DAY (BID)
     Route: 048
     Dates: start: 20150304
  2. TEGRETOL [Suspect]
     Active Substance: CARBAMAZEPINE
     Indication: SEIZURE
     Dosage: 400 MG, 2X/DAY (BID) EXTENDED RELEASE
     Route: 048
     Dates: start: 20141114
  3. TOPAMAX [Concomitant]
     Active Substance: TOPIRAMATE
     Dosage: 50 MG, 2X/DAY (BID)
     Route: 048
     Dates: start: 20150304
  4. VIMPAT [Suspect]
     Active Substance: LACOSAMIDE
     Indication: SEIZURE
     Dosage: 200 MG, 2X/DAY (BID)
     Route: 048
  5. OLANZAPINE. [Concomitant]
     Active Substance: OLANZAPINE
     Indication: SEIZURE
     Dosage: 7.5 MG, ONCE DAILY (QD)
     Route: 048
     Dates: start: 20141216
  6. TOPAMAX [Concomitant]
     Active Substance: TOPIRAMATE
     Indication: FOCAL DYSCOGNITIVE SEIZURES
     Dosage: UNK
  7. ZYPREXA [Concomitant]
     Active Substance: OLANZAPINE
     Indication: MOOD SWINGS
     Dosage: UNK
  8. KEPPRA [Suspect]
     Active Substance: LEVETIRACETAM
     Indication: SEIZURE
     Dosage: 500 MG , 7 TABLETS DAILY (1500/2000-3 IN MORNING, 4 AT NIGHT)
     Route: 048

REACTIONS (9)
  - Arthralgia [Recovered/Resolved]
  - Arthritis [Unknown]
  - Fall [Recovered/Resolved]
  - Blood sodium decreased [Unknown]
  - Pain in extremity [Recovered/Resolved]
  - Generalised tonic-clonic seizure [Unknown]
  - Focal dyscognitive seizures [Unknown]
  - Seizure [Not Recovered/Not Resolved]
  - Balance disorder [Recovered/Resolved]

NARRATIVE: CASE EVENT DATE: 2015
